FAERS Safety Report 11906385 (Version 1)
Quarter: 2016Q1

REPORT INFORMATION
  Report Type: Spontaneous
  Country: US (occurrence: None)
  Receive Date: 20160108
  Receipt Date: 20160108
  Transmission Date: 20160526
  Serious: Yes (Other)
  Sender: FDA-Public Use
  Company Number: None

PATIENT
  Age: 62 Year
  Sex: Female

DRUGS (2)
  1. CAPECITABINE 500MG TEVA [Suspect]
     Active Substance: CAPECITABINE
     Indication: CARCINOID TUMOUR
     Route: 048
     Dates: start: 20150610, end: 20151119
  2. TEMOZOLOMIDE 100MG TEVA [Suspect]
     Active Substance: TEMOZOLOMIDE
     Indication: HEPATIC CANCER
     Route: 048

REACTIONS (2)
  - Vomiting [None]
  - Nausea [None]

NARRATIVE: CASE EVENT DATE: 20151113
